FAERS Safety Report 5332935-X (Version None)
Quarter: 2007Q1

REPORT INFORMATION
  Report Type: 
  Country: None (occurrence: None)
  Receive Date: 20070306
  Receipt Date: 20060822
  Transmission Date: 20070707
  Serious: Yes (Other)
  Sender: FDA-Public Use
  Company Number: A03200605443

PATIENT
  Sex: Female

DRUGS (1)
  1. PLAVIX [Suspect]
     Indication: CAROTID ARTERY OCCLUSION
     Dosage: ORAL
     Route: 048
     Dates: start: 20010101

REACTIONS (2)
  - ARTERIOSCLEROSIS [None]
  - DRUG INEFFECTIVE [None]
